FAERS Safety Report 9323902 (Version 1)
Quarter: 2013Q2

REPORT INFORMATION
  Report Type: Spontaneous
  Country: US (occurrence: US)
  Receive Date: 20130603
  Receipt Date: 20130603
  Transmission Date: 20140414
  Serious: Yes (Other)
  Sender: FDA-Public Use
  Company Number: US-BRISTOL-MYERS SQUIBB COMPANY-18931956

PATIENT
  Age: 57 Year
  Sex: Female
  Weight: 86.17 kg

DRUGS (1)
  1. ABATACEPT SUBQ INJECTION 125MG/ML [Suspect]
     Dosage: LAST INJ: 10MAY2013
     Route: 058

REACTIONS (4)
  - Upper limb fracture [Unknown]
  - Herpes zoster [Unknown]
  - Skin disorder [Unknown]
  - Infection [Unknown]
